FAERS Safety Report 14711423 (Version 1)
Quarter: 2018Q2

REPORT INFORMATION
  Report Type: Spontaneous
  Country: US (occurrence: US)
  Receive Date: 20180403
  Receipt Date: 20180403
  Transmission Date: 20180711
  Serious: No
  Sender: FDA-Public Use
  Company Number: US-BAUSCH-BL-2017-021673

PATIENT
  Sex: Female
  Weight: 72.64 kg

DRUGS (4)
  1. NU-DERM BLENDER [Suspect]
     Active Substance: HYDROQUINONE
     Indication: SCAR
     Route: 061
     Dates: start: 2015, end: 201706
  2. TRETINOIN CREAM 0.05% [Suspect]
     Active Substance: TRETINOIN
     Route: 061
     Dates: start: 201706, end: 201706
  3. TRETINOIN CREAM 0.05% [Suspect]
     Active Substance: TRETINOIN
     Indication: SCAR
     Route: 061
     Dates: start: 2015, end: 201706
  4. NU-DERM BLENDER [Suspect]
     Active Substance: HYDROQUINONE
     Route: 061
     Dates: start: 201706, end: 201706

REACTIONS (3)
  - Off label use [Recovered/Resolved]
  - Acne [Recovered/Resolved]
  - Rash [Recovered/Resolved]

NARRATIVE: CASE EVENT DATE: 2015
